FAERS Safety Report 16873279 (Version 3)
Quarter: 2019Q4

REPORT INFORMATION
  Report Type: Spontaneous
  Country: JP (occurrence: JP)
  Receive Date: 20191001
  Receipt Date: 20191211
  Transmission Date: 20200122
  Serious: Yes (Hospitalization, Other)
  Sender: FDA-Public Use
  Company Number: JP-CELGENEUS-JPN-20190408166

PATIENT
  Age: 86 Year
  Sex: Female
  Weight: 44 kg

DRUGS (70)
  1. BELSOMRA [Concomitant]
     Active Substance: SUVOREXANT
     Dosage: 15 MILLIGRAM
     Route: 048
     Dates: start: 20190307
  2. RIVOTRIL [Concomitant]
     Active Substance: CLONAZEPAM
     Dosage: .5 MILLIGRAM
     Route: 048
     Dates: start: 20190307
  3. RIVOTRIL [Concomitant]
     Active Substance: CLONAZEPAM
     Dosage: 1 MILLIGRAM
     Route: 048
     Dates: start: 20190113, end: 20190128
  4. REMERON [Concomitant]
     Active Substance: MIRTAZAPINE
     Indication: DEPRESSION
     Dosage: 7.5 MILLIGRAM
     Route: 048
     Dates: start: 20190121, end: 20190206
  5. AZUNOL [Concomitant]
     Indication: PRODUCT USED FOR UNKNOWN INDICATION
     Route: 065
  6. UREA. [Concomitant]
     Active Substance: UREA
     Indication: DRUG ERUPTION
     Route: 065
     Dates: start: 20190717
  7. SOLITA-T [Concomitant]
     Indication: PROPHYLAXIS
     Route: 041
     Dates: start: 20181118, end: 20181121
  8. NEXIUM [Concomitant]
     Active Substance: ESOMEPRAZOLE MAGNESIUM
     Indication: NAUSEA
     Dosage: 10 MILLIGRAM
     Route: 048
     Dates: start: 20181127
  9. PRIMPERAN [Concomitant]
     Active Substance: METOCLOPRAMIDE HYDROCHLORIDE
     Indication: NAUSEA
     Dosage: 5 MILLIGRAM
     Route: 048
     Dates: start: 20181127
  10. BELSOMRA [Concomitant]
     Active Substance: SUVOREXANT
     Indication: NAUSEA
     Dosage: 7.5 MILLIGRAM
     Route: 048
     Dates: start: 20181224, end: 20181224
  11. DIQUAS [Concomitant]
     Active Substance: DIQUAFOSOL TETRASODIUM
     Indication: DRY EYE
     Dosage: 3 PERCENT
     Route: 048
     Dates: start: 2018
  12. CRAVIT [Concomitant]
     Active Substance: LEVOFLOXACIN
     Indication: ENTERITIS
     Dosage: 500 MILLIGRAM
     Route: 048
     Dates: start: 20181128, end: 20181212
  13. DEPAKENE-R [Concomitant]
     Active Substance: VALPROATE SODIUM
     Indication: DEPRESSION
     Dosage: 200 MILLIGRAM
     Route: 048
     Dates: start: 20190121, end: 20190123
  14. RIVOTRIL [Concomitant]
     Active Substance: CLONAZEPAM
     Indication: DEPRESSION
     Dosage: 1 MILLIGRAM
     Route: 048
     Dates: start: 20190113, end: 20190128
  15. RIVOTRIL [Concomitant]
     Active Substance: CLONAZEPAM
     Dosage: .5 MILLIGRAM
     Route: 048
     Dates: start: 20190221, end: 20190306
  16. REMERON [Concomitant]
     Active Substance: MIRTAZAPINE
     Dosage: 7.5 MILLIGRAM
     Route: 048
     Dates: start: 20190307, end: 20190804
  17. LORAZEPAM. [Concomitant]
     Active Substance: LORAZEPAM
     Indication: DEPRESSION
     Route: 065
     Dates: start: 20190110
  18. BETAMETHASONE DIPROPIONATE. [Concomitant]
     Active Substance: BETAMETHASONE DIPROPIONATE
     Indication: DRUG ERUPTION
     Route: 065
     Dates: start: 20190717
  19. VIDAZA [Suspect]
     Active Substance: AZACITIDINE
     Dosage: 75 MILLIGRAM/SQ. METER
     Route: 058
     Dates: start: 20190903
  20. VENETOCLAX. [Concomitant]
     Active Substance: VENETOCLAX
     Route: 048
     Dates: start: 20181121, end: 20190913
  21. FILGRASTIM [Concomitant]
     Active Substance: FILGRASTIM
     Indication: NEUTROPENIA
     Dosage: 75 MICROGRAM
     Route: 058
     Dates: start: 20190322, end: 20190322
  22. MIYA-BM [Concomitant]
     Active Substance: CLOSTRIDIUM BUTYRICUM SPORES STRAIN M-55
     Indication: CONSTIPATION
     Route: 048
     Dates: start: 201805
  23. NICORANDIL [Concomitant]
     Active Substance: NICORANDIL
     Indication: PROPHYLAXIS
     Dosage: 5 MILLIGRAM
     Route: 048
     Dates: start: 201805
  24. BELSOMRA [Concomitant]
     Active Substance: SUVOREXANT
     Dosage: 15 MILLIGRAM
     Route: 048
     Dates: start: 20190117, end: 20190306
  25. DEPAKENE-R [Concomitant]
     Active Substance: VALPROATE SODIUM
     Indication: DEPRESSION
     Dosage: 400 MILLIGRAM
     Route: 048
     Dates: start: 20190124, end: 20190128
  26. DEPAKENE-R [Concomitant]
     Active Substance: VALPROATE SODIUM
     Dosage: 400 MILLIGRAM
     Route: 048
     Dates: start: 20190124, end: 20190128
  27. REMERON [Concomitant]
     Active Substance: MIRTAZAPINE
     Dosage: 7.5 MILLIGRAM
     Route: 048
     Dates: start: 20190805
  28. MAGMITT [Concomitant]
     Active Substance: MAGNESIUM OXIDE
     Indication: CONSTIPATION
     Dosage: 250 MILLIGRAM
     Route: 065
     Dates: start: 201805
  29. DEPAKENE-R [Concomitant]
     Active Substance: VALPROATE SODIUM
     Dosage: 600 MILLIGRAM
     Route: 048
     Dates: start: 20190307
  30. RIVOTRIL [Concomitant]
     Active Substance: CLONAZEPAM
     Dosage: .5 MILLIGRAM
     Route: 048
     Dates: start: 20190129, end: 20190215
  31. REMERON [Concomitant]
     Active Substance: MIRTAZAPINE
     Indication: DEPRESSION
     Dosage: 7.5 MILLIGRAM
     Route: 048
     Dates: start: 20190207, end: 20190306
  32. LIDOCAINE HYDROCHLORIDE. [Concomitant]
     Active Substance: LIDOCAINE HYDROCHLORIDE
     Indication: PERIODONTAL DISEASE
     Route: 065
     Dates: start: 20190718
  33. ACETAMINOPHEN. [Concomitant]
     Active Substance: ACETAMINOPHEN
     Indication: FEBRILE NEUTROPENIA
     Route: 065
     Dates: start: 20190723
  34. GENTAMICIN SULFATE. [Concomitant]
     Active Substance: GENTAMICIN SULFATE
     Indication: SUBCUTANEOUS ABSCESS
     Route: 065
     Dates: start: 20190804
  35. COLIBACILLUS VACCINE [Concomitant]
     Indication: HAEMORRHOIDS
     Dosage: 3 MILLIGRAM
     Route: 065
     Dates: start: 20190714
  36. BFLUID [Concomitant]
     Active Substance: AMINO ACIDS\DEXTROSE\ELECTROLYTES NOS\VITAMINS
     Indication: ELECTROLYTE SUBSTITUTION THERAPY
     Dosage: 1000 MILLIGRAM
     Route: 065
     Dates: start: 20190714
  37. VENETOCLAX. [Concomitant]
     Active Substance: VENETOCLAX
     Indication: ACUTE MYELOID LEUKAEMIA
     Route: 048
     Dates: start: 20181119, end: 20181119
  38. BELSOMRA [Concomitant]
     Active Substance: SUVOREXANT
     Dosage: 7.5 MILLIGRAM
     Route: 048
     Dates: start: 20190116, end: 20190116
  39. BELSOMRA [Concomitant]
     Active Substance: SUVOREXANT
     Dosage: 15 MILLIGRAM
     Route: 048
     Dates: start: 20190117, end: 20190306
  40. DEPAKENE-R [Concomitant]
     Active Substance: VALPROATE SODIUM
     Dosage: 600 MILLIGRAM
     Route: 048
     Dates: start: 20190129, end: 20190306
  41. VENETOCLAX. [Concomitant]
     Active Substance: VENETOCLAX
     Route: 048
     Dates: start: 20190903
  42. FEBUXOSTAT. [Concomitant]
     Active Substance: FEBUXOSTAT
     Indication: PROPHYLAXIS
     Dosage: 20 MILLIGRAM
     Route: 048
     Dates: start: 20181116, end: 20181129
  43. CONIEL [Concomitant]
     Active Substance: BENIDIPINE HYDROCHLORIDE
     Indication: HYPERTENSION
     Dosage: 2 MILLIGRAM
     Route: 048
     Dates: start: 2012
  44. ALOSENNINE [Concomitant]
     Indication: CONSTIPATION
     Dosage: .5 GRAM
     Route: 065
     Dates: start: 20181205
  45. QUETIAPINE. [Concomitant]
     Active Substance: QUETIAPINE
     Indication: DEPRESSION
     Dosage: 25 MILLIGRAM
     Route: 048
     Dates: start: 20190109
  46. DEPAKENE-R [Concomitant]
     Active Substance: VALPROATE SODIUM
     Dosage: 600 MILLIGRAM
     Route: 048
     Dates: start: 20190129, end: 20190306
  47. RIVOTRIL [Concomitant]
     Active Substance: CLONAZEPAM
     Dosage: .5 MILLIGRAM
     Route: 048
     Dates: start: 20190131, end: 20190306
  48. DEXAMETHASONE. [Concomitant]
     Active Substance: DEXAMETHASONE
     Indication: MUCOSAL INFLAMMATION
     Route: 048
     Dates: start: 20190122
  49. TEICOPLANIN [Concomitant]
     Active Substance: TEICOPLANIN
     Indication: FEBRILE NEUTROPENIA
     Route: 065
     Dates: start: 20190825
  50. SODIUM GUALENATE HYDRATE [Concomitant]
     Active Substance: SODIUM GUALENATE MONOHYDRATE
     Indication: INFECTION PROPHYLAXIS
     Route: 049
     Dates: start: 20190327
  51. SOLITA-T [Concomitant]
     Route: 041
     Dates: start: 20181122, end: 20181128
  52. CRAVIT [Concomitant]
     Active Substance: LEVOFLOXACIN
     Dosage: 500 MILLIGRAM
     Route: 048
     Dates: start: 20190425, end: 20190613
  53. CRAVIT [Concomitant]
     Active Substance: LEVOFLOXACIN
     Dosage: 500 MILLIGRAM
     Route: 048
     Dates: start: 20190614
  54. RIVOTRIL [Concomitant]
     Active Substance: CLONAZEPAM
     Dosage: 1 MILLIGRAM
     Route: 048
     Dates: start: 20190110, end: 20190112
  55. POVIDONE-IODINE. [Concomitant]
     Active Substance: POVIDONE-IODINE
     Indication: MUCOSAL INFLAMMATION
     Route: 048
     Dates: start: 20190121
  56. CHLORPHENIRAMINE MALEATE. [Concomitant]
     Active Substance: CHLORPHENIRAMINE MALEATE
     Indication: INJECTION RELATED REACTION
     Route: 065
     Dates: start: 20181201
  57. BETAMETHASONE BUTYRATE PROPIONATE [Concomitant]
     Active Substance: BETAMETHASONE BUTYRATE PROPIONATE
     Indication: DRUG ERUPTION
     Route: 065
     Dates: start: 20190715
  58. VIDAZA [Suspect]
     Active Substance: AZACITIDINE
     Indication: ACUTE MYELOID LEUKAEMIA
     Dosage: 75 MILLIGRAM/SQ. METER
     Route: 058
     Dates: start: 20181119, end: 20190624
  59. VENETOCLAX. [Concomitant]
     Active Substance: VENETOCLAX
     Route: 048
     Dates: start: 20181120, end: 20181120
  60. SANCOBA [Concomitant]
     Active Substance: CYANOCOBALAMIN
     Indication: ASTHENOPIA
     Dosage: .02 PERCENT
     Route: 065
     Dates: start: 2018
  61. CRAVIT [Concomitant]
     Active Substance: LEVOFLOXACIN
     Indication: FEBRILE NEUTROPENIA
     Dosage: 500 MILLIGRAM
     Route: 048
     Dates: start: 20190321, end: 20190325
  62. CRAVIT [Concomitant]
     Active Substance: LEVOFLOXACIN
     Dosage: 500 MILLIGRAM
     Route: 048
     Dates: end: 20190711
  63. DEPAKENE-R [Concomitant]
     Active Substance: VALPROATE SODIUM
     Dosage: 200 MILLIGRAM
     Route: 048
     Dates: start: 20190121, end: 20190123
  64. RIVOTRIL [Concomitant]
     Active Substance: CLONAZEPAM
     Indication: DEPRESSION
     Dosage: .5 MILLIGRAM
     Route: 048
     Dates: start: 20190110, end: 20190112
  65. RIVOTRIL [Concomitant]
     Active Substance: CLONAZEPAM
     Dosage: .5 MILLIGRAM
     Route: 048
     Dates: start: 20190129, end: 20190215
  66. RIVOTRIL [Concomitant]
     Active Substance: CLONAZEPAM
     Dosage: .5 MILLIGRAM
     Route: 048
     Dates: start: 20190221, end: 20190306
  67. SUVOREXANT. [Concomitant]
     Active Substance: SUVOREXANT
     Indication: DEPRESSION
     Dosage: 15 MILLIGRAM
     Route: 048
     Dates: start: 20190307
  68. DIPHENHYDRAMINE. [Concomitant]
     Active Substance: DIPHENHYDRAMINE
     Indication: DRY SKIN
     Route: 061
     Dates: start: 20190417, end: 20190530
  69. DIPHENHYDRAMINE. [Concomitant]
     Active Substance: DIPHENHYDRAMINE
     Route: 061
     Dates: start: 20190621
  70. RESTAMIN [Concomitant]
     Active Substance: DIPHENHYDRAMINE
     Indication: PRODUCT USED FOR UNKNOWN INDICATION
     Route: 065

REACTIONS (3)
  - Febrile neutropenia [Recovered/Resolved]
  - Febrile neutropenia [Recovered/Resolved]
  - Liver abscess [Not Recovered/Not Resolved]

NARRATIVE: CASE EVENT DATE: 20190325
